FAERS Safety Report 8910146 (Version 1)
Quarter: 2012Q4

REPORT INFORMATION
  Report Type: 
  Country: IT (occurrence: IT)
  Receive Date: 20121115
  Receipt Date: 20121115
  Transmission Date: 20130627
  Serious: Yes (Death, Other)
  Sender: FDA-Public Use
  Company Number: IT-MERCK-1210ITA003111

PATIENT
  Age: 67 Year
  Sex: Male
  Weight: 60 kg

DRUGS (4)
  1. CANCIDAS [Suspect]
     Indication: BACTERAEMIA
     Dosage: 50 mg, qd
     Route: 042
     Dates: start: 20120930, end: 20121009
  2. CANCIDAS [Suspect]
     Indication: CANDIDIASIS
  3. TYGACIL [Concomitant]
     Indication: ACINETOBACTER INFECTION
     Dosage: 100 mg, qd
     Route: 042
     Dates: start: 20120904, end: 20121008
  4. MERREM [Concomitant]
     Indication: ACINETOBACTER INFECTION
     Dosage: 2 g, UNK
     Route: 042
     Dates: start: 20120930, end: 20121017

REACTIONS (4)
  - Drug ineffective [Unknown]
  - Respiratory failure [Fatal]
  - Muscular weakness [Fatal]
  - Septic shock [Unknown]
